FAERS Safety Report 4969044-5 (Version None)
Quarter: 2006Q2

REPORT INFORMATION
  Report Type: 
  Country: None (occurrence: None)
  Receive Date: 20060411
  Receipt Date: 20060331
  Transmission Date: 20061013
  Serious: Yes (Other)
  Sender: FDA-Public Use
  Company Number: FR-MERCK-0604FRA00001

PATIENT
  Age: 68 Year
  Sex: Male
  Weight: 76 kg

DRUGS (1)
  1. PROSCAR [Suspect]
     Indication: BENIGN PROSTATIC HYPERPLASIA
     Route: 048
     Dates: start: 20060228, end: 20060327

REACTIONS (1)
  - DIABETES MELLITUS [None]
